FAERS Safety Report 4684721-1 (Version None)
Quarter: 2005Q2

REPORT INFORMATION
  Report Type: 
  Country: None (occurrence: None)
  Receive Date: 20050531
  Receipt Date: 20050214
  Transmission Date: 20051028
  Serious: Yes (Hospitalization, Other)
  Sender: FDA-Public Use
  Company Number: USA050289778

PATIENT
  Age: 9 Year
  Sex: Female

DRUGS (3)
  1. ZYPREXA [Suspect]
     Indication: HALLUCINATION
     Dosage: 5 MG DAY
     Dates: start: 20041220, end: 20050120
  2. SEROQUEL [Concomitant]
  3. LEXAPRO [Concomitant]

REACTIONS (5)
  - DEHYDRATION [None]
  - DIARRHOEA [None]
  - MOOD SWINGS [None]
  - SUICIDE ATTEMPT [None]
  - VOMITING [None]
